FAERS Safety Report 4697984-3 (Version None)
Quarter: 2005Q2

REPORT INFORMATION
  Report Type: 
  Country: None (occurrence: None)
  Receive Date: 20050621
  Receipt Date: 20050609
  Transmission Date: 20051028
  Serious: Yes (Other)
  Sender: FDA-Public Use
  Company Number: 2005088879

PATIENT
  Age: 81 Year
  Sex: Female

DRUGS (1)
  1. GABAPENTIN [Suspect]
     Indication: ILL-DEFINED DISORDER

REACTIONS (6)
  - CHEST PAIN [None]
  - DRUG WITHDRAWAL SYNDROME [None]
  - HYPERTENSION [None]
  - INFLUENZA LIKE ILLNESS [None]
  - MENTAL STATUS CHANGES [None]
  - UPPER RESPIRATORY TRACT INFECTION [None]
